FAERS Safety Report 9030821 (Version 1)
Quarter: 2013Q1

REPORT INFORMATION
  Report Type: Report from Study
  Country: CA (occurrence: CA)
  Receive Date: 20130123
  Receipt Date: 20130123
  Transmission Date: 20140127
  Serious: Yes (Hospitalization)
  Sender: FDA-Public Use
  Company Number: CA-ROCHE-1181929

PATIENT
  Age: 19 Year
  Sex: Male
  Weight: 52.2 kg

DRUGS (4)
  1. RITUXAN [Suspect]
     Indication: VASCULITIS CEREBRAL
     Route: 042
     Dates: start: 20120813
  2. PREDNISONE [Concomitant]
  3. FLUCONAZOLE [Concomitant]
  4. SULFATRIM [Concomitant]

REACTIONS (1)
  - Cerebral haemorrhage [Recovered/Resolved]
